FAERS Safety Report 19165922 (Version 1)
Quarter: 2021Q2

REPORT INFORMATION
  Report Type: Report from Study
  Country: US (occurrence: US)
  Receive Date: 20210421
  Receipt Date: 20210421
  Transmission Date: 20210717
  Serious: Yes (Hospitalization, Other)
  Sender: FDA-Public Use
  Company Number: US-AURINIA PHARMACEUTICALS INC.-AUR-000027

PATIENT
  Age: 25 Year
  Sex: Female

DRUGS (3)
  1. LUPKYNIS [Suspect]
     Active Substance: VOCLOSPORIN
     Indication: GLOMERULAR VASCULAR DISORDER
     Dosage: 15.8 MILLIGRAM (2 TAB), BID
     Route: 048
     Dates: start: 20210309, end: 20210329
  2. LUPKYNIS [Suspect]
     Active Substance: VOCLOSPORIN
     Indication: LUPUS NEPHRITIS
     Dosage: 23.7 MILLIGRAM, BID
     Route: 048
     Dates: start: 20210309, end: 202103
  3. LUPKYNIS [Suspect]
     Active Substance: VOCLOSPORIN
     Indication: SYSTEMIC LUPUS ERYTHEMATOSUS

REACTIONS (4)
  - Hospitalisation [Not Recovered/Not Resolved]
  - Headache [Unknown]
  - Hypertension [Recovered/Resolved]
  - Swelling [Not Recovered/Not Resolved]

NARRATIVE: CASE EVENT DATE: 202103
